FAERS Safety Report 4990385-X (Version None)
Quarter: 2006Q2

REPORT INFORMATION
  Report Type: 
  Country: None (occurrence: None)
  Receive Date: 20060502
  Receipt Date: 20060502
  Transmission Date: 20061013
  Serious: No
  Sender: FDA-Public Use
  Company Number: None

PATIENT
  Age: 59 Year
  Sex: Female
  Weight: 72.5755 kg

DRUGS (3)
  1. PROZAC [Suspect]
     Indication: DEPRESSION
     Dosage: 20 MG 1XDAY PO
     Route: 048
  2. CYMBALTA [Suspect]
     Indication: FATIGUE
     Dosage: 30 MG  1XDAY PO
     Route: 048
  3. CYMBALTA [Suspect]
     Indication: PAIN
     Dosage: 30 MG  1XDAY PO
     Route: 048

REACTIONS (21)
  - AGGRESSION [None]
  - ANGER [None]
  - ANXIETY [None]
  - BALANCE DISORDER [None]
  - BEDRIDDEN [None]
  - CHILLS [None]
  - DISSOCIATION [None]
  - DIZZINESS [None]
  - DRUG EFFECT DECREASED [None]
  - DRUG WITHDRAWAL SYNDROME [None]
  - FALL [None]
  - FATIGUE [None]
  - FEELING JITTERY [None]
  - GAIT DISTURBANCE [None]
  - INFLUENZA LIKE ILLNESS [None]
  - NERVOUS SYSTEM DISORDER [None]
  - NEUROLOGICAL SYMPTOM [None]
  - PAIN [None]
  - PARAESTHESIA [None]
  - STRESS [None]
  - VISUAL DISTURBANCE [None]
